FAERS Safety Report 8954190 (Version 3)
Quarter: 2015Q4

REPORT INFORMATION
  Report Type: Spontaneous
  Country: JP (occurrence: JP)
  Receive Date: 20121207
  Receipt Date: 20151216
  Transmission Date: 20160305
  Serious: Yes (Hospitalization, Other)
  Sender: FDA-Public Use
  Company Number: JP-BAYER-201011227BYL

PATIENT
  Age: 66 Year
  Sex: Male
  Weight: 68 kg

DRUGS (7)
  1. NEXAVAR [Suspect]
     Active Substance: SORAFENIB
     Indication: HEPATOCELLULAR CARCINOMA
     Dosage: 200 MG, QID
     Route: 048
     Dates: start: 20100113, end: 20100118
  2. NEXAVAR [Suspect]
     Active Substance: SORAFENIB
     Indication: HEPATOCELLULAR CARCINOMA
     Dosage: 200 MG (DAILY DOSE)
     Route: 048
     Dates: start: 20100202, end: 20100208
  3. URSO [Concomitant]
     Active Substance: URSODIOL
     Indication: LIVER DISORDER
     Dosage: DAILY DOSE 300 MG
     Route: 048
     Dates: start: 20091224
  4. NEXAVAR [Suspect]
     Active Substance: SORAFENIB
     Indication: HEPATOCELLULAR CARCINOMA
     Dosage: 400 MG (DAILY DOSE)
     Route: 048
     Dates: start: 20100209, end: 20100303
  5. NEXAVAR [Suspect]
     Active Substance: SORAFENIB
     Indication: HEPATOCELLULAR CARCINOMA
     Dosage: 600 MG (DAILY DOSE), , ORAL
     Route: 048
  6. NEXAVAR [Suspect]
     Active Substance: SORAFENIB
     Indication: HEPATOCELLULAR CARCINOMA
     Dosage: 800 MG (DAILY DOSE)
     Route: 048
     Dates: start: 20100304, end: 20100310
  7. RANDA [Concomitant]
     Active Substance: CISPLATIN
     Dosage: DAILY DOSE 50 MG
     Route: 013
     Dates: start: 20091030, end: 20091030

REACTIONS (6)
  - Aspartate aminotransferase increased [Recovered/Resolved]
  - Tumour lysis syndrome [Recovered/Resolved]
  - Pyrexia [Recovered/Resolved]
  - Blood lactate dehydrogenase increased [Recovered/Resolved]
  - C-reactive protein increased [Recovered/Resolved]
  - Alanine aminotransferase increased [Recovered/Resolved]

NARRATIVE: CASE EVENT DATE: 20100118
